FAERS Safety Report 17073927 (Version 3)
Quarter: 2020Q1

REPORT INFORMATION
  Report Type: Other
  Country: US (occurrence: US)
  Receive Date: 20191126
  Receipt Date: 20200325
  Transmission Date: 20200409
  Serious: Yes (Death)
  Sender: FDA-Public Use
  Company Number: US-LA JOLLA PHARMACEUTICAL COMPANY-0000328

PATIENT

DRUGS (7)
  1. GIAPREZA [Suspect]
     Active Substance: ANGIOTENSIN II
     Indication: HYPOTENSION
  2. LOSARTAN. [Concomitant]
     Active Substance: LOSARTAN
     Dosage: UNK
  3. VASOPRESSIN. [Concomitant]
     Active Substance: VASOPRESSIN
     Dosage: 0.04 UNITS/MIN, UNK
     Dates: start: 20191101
  4. NOREPINEPHRINE. [Concomitant]
     Active Substance: NOREPINEPHRINE
     Dosage: 0.5 ?G/KG/MIN, UNK
     Dates: start: 20191101
  5. KETAMINE [Concomitant]
     Active Substance: KETAMINE
     Dosage: UNK
  6. PROPOFOL. [Concomitant]
     Active Substance: PROPOFOL
  7. GIAPREZA [Suspect]
     Active Substance: ANGIOTENSIN II
     Indication: SEPTIC SHOCK
     Dosage: 80 NG, UNK
     Dates: start: 20191101, end: 20191101

REACTIONS (2)
  - Cardiac arrest [Fatal]
  - Pulmonary embolism [Fatal]

NARRATIVE: CASE EVENT DATE: 20191101
